FAERS Safety Report 8568107-5 (Version None)
Quarter: 2012Q3

REPORT INFORMATION
  Report Type: 
  Country: None (occurrence: None)
  Receive Date: 20120803
  Receipt Date: 20120706
  Transmission Date: 20120928
  Serious: No
  Sender: FDA-Public Use
  Company Number: US-ABBOTT-12P-163-0953464-00

PATIENT
  Sex: Male
  Weight: 77.18 kg

DRUGS (14)
  1. SIMVASTATIN [Concomitant]
     Indication: PRODUCT USED FOR UNKNOWN INDICATION
  2. LANTUS SOLAR STAR [Concomitant]
     Indication: DIABETES MELLITUS
  3. OXYCODONE HCL [Concomitant]
     Indication: HEADACHE
  4. D3 [Concomitant]
     Indication: PRODUCT USED FOR UNKNOWN INDICATION
  5. M10 POTASSIUM [Concomitant]
     Indication: PRODUCT USED FOR UNKNOWN INDICATION
  6. TRAZODONE HCL [Concomitant]
     Indication: ANXIETY
  7. VIT E [Concomitant]
     Indication: PRODUCT USED FOR UNKNOWN INDICATION
  8. SYNTHROID [Concomitant]
     Indication: THYROID DISORDER
  9. LASIX [Concomitant]
     Indication: FLUID RETENTION
  10. NIASPAN [Suspect]
     Indication: BLOOD CHOLESTEROL INCREASED
     Dosage: ONCE A DAY, NO LOT# AVAILABLE REPACKAGED
     Route: 048
     Dates: start: 20100601
  11. DEXALOT [Concomitant]
     Indication: GASTROOESOPHAGEAL REFLUX DISEASE
  12. PROZAC [Concomitant]
     Indication: BIPOLAR DISORDER
  13. PENTASA [Concomitant]
     Indication: CROHN'S DISEASE
  14. FISH OIL [Concomitant]
     Indication: PRODUCT USED FOR UNKNOWN INDICATION

REACTIONS (3)
  - ERYTHEMA [None]
  - FLUSHING [None]
  - PARAESTHESIA [None]
